FAERS Safety Report 7122270-1 (Version None)
Quarter: 2010Q4

REPORT INFORMATION
  Report Type: 
  Country: None (occurrence: None)
  Receive Date: 20101124
  Receipt Date: 20101117
  Transmission Date: 20110411
  Serious: Yes (Other)
  Sender: FDA-Public Use
  Company Number: CA-JNJFOC-20090701942

PATIENT
  Age: 20 Year
  Sex: Male
  Weight: 135 kg

DRUGS (9)
  1. REMICADE [Suspect]
     Indication: ANKYLOSING SPONDYLITIS
     Route: 042
  2. REMICADE [Suspect]
     Dosage: DOSE OF 600MG INCREASED TO 700MG
     Route: 042
  3. INDERAL [Concomitant]
  4. AMITRIPTYLINE HCL [Concomitant]
  5. CELEBREX [Concomitant]
  6. NEXIUM [Concomitant]
  7. ALL OTHER THERAPEUTIC PRODUCTS [Concomitant]
  8. OXYCET [Concomitant]
     Dosage: DOSE 5/325 MG
  9. TYLENOL W/ CODEINE NO. 3 [Concomitant]

REACTIONS (1)
  - ABNORMAL WEIGHT GAIN [None]
